FAERS Safety Report 25949507 (Version 2)
Quarter: 2025Q4

REPORT INFORMATION
  Report Type: Spontaneous
  Country: US (occurrence: US)
  Receive Date: 20251022
  Receipt Date: 20251104
  Transmission Date: 20260118
  Serious: Yes (Life-Threatening, Hospitalization)
  Sender: DR REDDYS
  Company Number: None

PATIENT
  Sex: Male
  Weight: 19.9 kg

DRUGS (31)
  1. DOXORUBICIN [Suspect]
     Active Substance: DOXORUBICIN
     Indication: Hepatic cancer recurrent
     Dosage: C5VD CYCLE 1,2,3,4
     Dates: start: 2022, end: 2022
  2. DOXORUBICIN [Suspect]
     Active Substance: DOXORUBICIN
     Indication: Hepatoblastoma
     Dosage: C5VD CYCLE 5 AND 6 (POST-LIVER TRANSPLANT)
     Dates: start: 2023, end: 2023
  3. DOXORUBICIN [Suspect]
     Active Substance: DOXORUBICIN
     Indication: Hepatocellular carcinoma
  4. GEMCITABINE [Suspect]
     Active Substance: GEMCITABINE
     Indication: Hepatic cancer recurrent
     Dates: start: 2024, end: 2025
  5. GEMCITABINE [Suspect]
     Active Substance: GEMCITABINE
     Indication: Hepatoblastoma
  6. GEMCITABINE [Suspect]
     Active Substance: GEMCITABINE
     Indication: Hepatocellular carcinoma
  7. CARBOPLATIN [Suspect]
     Active Substance: CARBOPLATIN
     Indication: Hepatic cancer recurrent
     Dosage: POST-LIVER TRANSPLANT
     Dates: start: 2023, end: 2023
  8. CARBOPLATIN [Suspect]
     Active Substance: CARBOPLATIN
     Indication: Hepatoblastoma
  9. CARBOPLATIN [Suspect]
     Active Substance: CARBOPLATIN
     Indication: Hepatocellular carcinoma
  10. CISPLATIN [Suspect]
     Active Substance: CISPLATIN
     Indication: Hepatic cancer recurrent
     Dosage: C5VD CYCLE 1,2,3,4
     Dates: start: 2022, end: 2022
  11. CISPLATIN [Suspect]
     Active Substance: CISPLATIN
     Indication: Hepatoblastoma
     Dosage: C5VD CYCLE 5 AND 6 (POST-LIVER TRANSPLANT)
     Dates: start: 2023, end: 2023
  12. CISPLATIN [Suspect]
     Active Substance: CISPLATIN
     Indication: Hepatocellular carcinoma
     Dosage: ELEVEN MONTHS POST-TRANSPLANT
     Dates: start: 2024, end: 2024
  13. FLUOROURACIL [Suspect]
     Active Substance: FLUOROURACIL
     Indication: Hepatic cancer recurrent
     Dosage: C5VD CYCLE 1,2,3,4
     Dates: start: 2022, end: 2022
  14. FLUOROURACIL [Suspect]
     Active Substance: FLUOROURACIL
     Indication: Hepatoblastoma
     Dosage: C5VD CYCLE 5 AND 6 (POST-LIVER TRANSPLANT)
     Dates: start: 2023, end: 2023
  15. FLUOROURACIL [Suspect]
     Active Substance: FLUOROURACIL
     Indication: Hepatocellular carcinoma
  16. VINCRISTINE [Suspect]
     Active Substance: VINCRISTINE
     Indication: Hepatic cancer recurrent
     Dosage: C5VD CYCLE 1,2,3,4
     Dates: start: 2022, end: 2022
  17. VINCRISTINE [Suspect]
     Active Substance: VINCRISTINE
     Indication: Hepatoblastoma
     Dosage: C5VD CYCLE 5 AND 6 (POST-LIVER TRANSPLANT)
     Dates: start: 2023, end: 2023
  18. VINCRISTINE [Suspect]
     Active Substance: VINCRISTINE
     Indication: Hepatocellular carcinoma
     Dosage: CYCLE 1
     Dates: start: 2022, end: 2023
  19. VINCRISTINE [Suspect]
     Active Substance: VINCRISTINE
     Dosage: CYCLE 2
     Dates: start: 2023, end: 2023
  20. ETOPOSIDE [Suspect]
     Active Substance: ETOPOSIDE
     Indication: Hepatic cancer recurrent
     Dosage: POST-LIVER TRANSPLANT
     Dates: start: 2023, end: 2023
  21. ETOPOSIDE [Suspect]
     Active Substance: ETOPOSIDE
     Indication: Hepatoblastoma
  22. ETOPOSIDE [Suspect]
     Active Substance: ETOPOSIDE
     Indication: Hepatocellular carcinoma
  23. VORINOSTAT [Suspect]
     Active Substance: VORINOSTAT
     Indication: Hepatic cancer recurrent
     Dosage: ELEVEN MONTHS POST-TRANSPLANT
     Dates: start: 2024, end: 2024
  24. VORINOSTAT [Suspect]
     Active Substance: VORINOSTAT
     Indication: Hepatoblastoma
  25. VORINOSTAT [Suspect]
     Active Substance: VORINOSTAT
     Indication: Hepatocellular carcinoma
  26. IRINOTECAN [Suspect]
     Active Substance: IRINOTECAN
     Indication: Hepatic cancer recurrent
     Dosage: CYCLE 1
     Dates: start: 2022, end: 2023
  27. IRINOTECAN [Suspect]
     Active Substance: IRINOTECAN
     Indication: Hepatoblastoma
     Dosage: CYCLE 1
     Dates: start: 2023, end: 2023
  28. IRINOTECAN [Suspect]
     Active Substance: IRINOTECAN
     Indication: Hepatocellular carcinoma
  29. OXALIPLATIN [Suspect]
     Active Substance: OXALIPLATIN
     Indication: Hepatic cancer recurrent
     Dates: start: 2024, end: 2025
  30. OXALIPLATIN [Suspect]
     Active Substance: OXALIPLATIN
     Indication: Hepatoblastoma
  31. OXALIPLATIN [Suspect]
     Active Substance: OXALIPLATIN
     Indication: Hepatocellular carcinoma

REACTIONS (1)
  - Radiation hepatitis [Recovered/Resolved]

NARRATIVE: CASE EVENT DATE: 20240101
